FAERS Safety Report 11703618 (Version 2)
Quarter: 2015Q4

REPORT INFORMATION
  Report Type: Spontaneous
  Country: US (occurrence: US)
  Receive Date: 20151104
  Receipt Date: 20151110
  Transmission Date: 20160304
  Serious: No
  Sender: FDA-Public Use
  Company Number: US-ELI_LILLY_AND_COMPANY-US201101004217

PATIENT
  Age: 61 Year
  Sex: Female

DRUGS (3)
  1. FORTEO [Suspect]
     Active Substance: TERIPARATIDE
     Indication: OSTEOPOROSIS
     Dosage: 20 UG, DAILY (1/D)
     Route: 065
     Dates: start: 20101231
  2. FORTEO [Suspect]
     Active Substance: TERIPARATIDE
     Dosage: 20 UG, QD
  3. FORTEO [Suspect]
     Active Substance: TERIPARATIDE
     Dosage: 20 UG, QD

REACTIONS (15)
  - Fall [Unknown]
  - Muscle spasms [Recovering/Resolving]
  - Bone disorder [Unknown]
  - Asthenia [Not Recovered/Not Resolved]
  - Contusion [Unknown]
  - Bone fissure [Recovering/Resolving]
  - Nervousness [Unknown]
  - Fatigue [Not Recovered/Not Resolved]
  - Injection site pain [Recovering/Resolving]
  - Foot fracture [Recovering/Resolving]
  - Insomnia [Recovered/Resolved]
  - Drug dose omission [Recovered/Resolved]
  - Dysstasia [Unknown]
  - Middle insomnia [Recovering/Resolving]
  - Nausea [Recovered/Resolved]

NARRATIVE: CASE EVENT DATE: 20101231
